FAERS Safety Report 6980618-2 (Version None)
Quarter: 2010Q3

REPORT INFORMATION
  Report Type: 
  Country: None (occurrence: None)
  Receive Date: 20100914
  Receipt Date: 20100902
  Transmission Date: 20110219
  Serious: Yes (Hospitalization, Other)
  Sender: FDA-Public Use
  Company Number: US-PFIZER INC-2010110656

PATIENT
  Sex: Male
  Weight: 140.14 kg

DRUGS (3)
  1. LYRICA [Suspect]
     Indication: FIBROMYALGIA
     Dosage: 50 MG, 2X/DAY
     Dates: start: 20080101
  2. LYRICA [Suspect]
     Dosage: 450 MG, 1X/DAY
     Route: 048
     Dates: start: 20080101
  3. AMITRIPTYLINE [Concomitant]
     Indication: SLEEP APNOEA SYNDROME
     Dosage: 25 MG, 1X/DAY
     Route: 048

REACTIONS (12)
  - CHEST PAIN [None]
  - CHILLS [None]
  - DIZZINESS [None]
  - DYSPNOEA [None]
  - HEART RATE INCREASED [None]
  - HYPERHIDROSIS [None]
  - HYPERTENSION [None]
  - NASOPHARYNGITIS [None]
  - PANIC ATTACK [None]
  - SKIN BURNING SENSATION [None]
  - VERTIGO [None]
  - VISION BLURRED [None]
